FAERS Safety Report 24281593 (Version 1)
Quarter: 2024Q3

REPORT INFORMATION
  Report Type: Spontaneous
  Country: US (occurrence: US)
  Receive Date: 20240904
  Receipt Date: 20240904
  Transmission Date: 20241016
  Serious: No
  Sender: PFIZER
  Company Number: US-PFIZER INC-202400246851

PATIENT
  Age: 2 Year
  Sex: Male
  Weight: 10.091 kg

DRUGS (1)
  1. GENOTROPIN [Suspect]
     Active Substance: SOMATROPIN
     Indication: Growth hormone deficiency
     Dosage: 0.5 MG MONDAY-SATURDAY GIVE IN MOST FATTIEST PART OF HIP AND ARM ATTACH NEEDLE TO THE TOP OF THE PEN

REACTIONS (3)
  - Drug dose omission by device [Unknown]
  - Device information output issue [Unknown]
  - Device breakage [Unknown]

NARRATIVE: CASE EVENT DATE: 20240826
